FAERS Safety Report 9371927 (Version 1)
Quarter: 2013Q2

REPORT INFORMATION
  Report Type: Spontaneous
  Country: US (occurrence: US)
  Receive Date: 20130627
  Receipt Date: 20130627
  Transmission Date: 20140414
  Serious: No
  Sender: FDA-Public Use
  Company Number: US-MYLANLABS-2012S1010628

PATIENT
  Age: 56 Year
  Sex: Female

DRUGS (2)
  1. CLOZAPINE TABLETS [Suspect]
     Indication: BIPOLAR DISORDER
     Dates: start: 20120331, end: 20120430
  2. SIMVASTATIN [Concomitant]

REACTIONS (8)
  - Drug ineffective [Recovered/Resolved]
  - Headache [Recovered/Resolved]
  - Swelling face [Recovered/Resolved]
  - Joint swelling [Recovered/Resolved]
  - Neck pain [Not Recovered/Not Resolved]
  - Musculoskeletal pain [Recovered/Resolved]
  - Erythema [Recovered/Resolved]
  - Euphoric mood [Recovered/Resolved]
